FAERS Safety Report 12613094 (Version 1)
Quarter: 2016Q3

REPORT INFORMATION
  Report Type: Report from Study
  Country: US (occurrence: US)
  Receive Date: 20160802
  Receipt Date: 20160802
  Transmission Date: 20161109
  Serious: Yes (Hospitalization, Other)
  Sender: FDA-Public Use
  Company Number: US-ROCHE-798295

PATIENT
  Age: 70 Year
  Sex: Female
  Weight: 55.4 kg

DRUGS (8)
  1. VISMODEGIB [Suspect]
     Active Substance: VISMODEGIB
     Indication: SMALL CELL LUNG CANCER
     Dosage: TOTAL DOSE: 3150 MG, LAST DOSE: 12/AUG/2011 AND 22/MAY/2011
     Route: 048
     Dates: start: 20110502, end: 20110907
  2. VISMODEGIB [Suspect]
     Active Substance: VISMODEGIB
     Route: 048
  3. ETOPOSIDE. [Suspect]
     Active Substance: ETOPOSIDE
     Indication: SMALL CELL LUNG CANCER
     Dosage: IV OVER 2 HRS ON DAY 1-3, LAST DOSE PRIOR TO SAE 14 JULY 2011 AND 02/MAY/2011, TOTAL DOSE:456 MG
     Route: 042
     Dates: start: 20110502
  4. VISMODEGIB [Suspect]
     Active Substance: VISMODEGIB
     Route: 048
  5. VISMODEGIB [Suspect]
     Active Substance: VISMODEGIB
     Route: 048
  6. VISMODEGIB [Suspect]
     Active Substance: VISMODEGIB
     Route: 048
  7. CISPLATIN. [Suspect]
     Active Substance: CISPLATIN
     Indication: SMALL CELL LUNG CANCER
     Dosage: IV OVER 2 HRS ON DAY 1, TOTAL DOSE:114 MG, LAST DOSE:12 JULY 2011 AND 02/MAY/2011.
     Route: 042
     Dates: start: 20110502
  8. AUGMENTIN [Suspect]
     Active Substance: AMOXICILLIN\CLAVULANATE POTASSIUM
     Indication: PRODUCT USED FOR UNKNOWN INDICATION
     Route: 065

REACTIONS (4)
  - Neutrophil count decreased [Recovered/Resolved]
  - Anaemia [Not Recovered/Not Resolved]
  - Diarrhoea [Not Recovered/Not Resolved]
  - White blood cell count decreased [Unknown]

NARRATIVE: CASE EVENT DATE: 20110520
